FAERS Safety Report 4295806-6 (Version None)
Quarter: 2004Q1

REPORT INFORMATION
  Report Type: 
  Country: None (occurrence: None)
  Receive Date: 20040216
  Receipt Date: 20031110
  Transmission Date: 20041129
  Serious: No
  Sender: FDA-Public Use
  Company Number: US-GLAXOSMITHKLINE-A0439043A

PATIENT
  Age: 33 Year
  Sex: Female

DRUGS (2)
  1. LAMICTAL [Suspect]
     Indication: TRIGEMINAL NEURALGIA
     Dosage: 50MG PER DAY
     Route: 048
     Dates: start: 20031101, end: 20031107
  2. BIRTH CONTROL PILLS [Concomitant]

REACTIONS (2)
  - MOUTH ULCERATION [None]
  - SWOLLEN TONGUE [None]
